FAERS Safety Report 8840019 (Version 2)
Quarter: 2014Q2

REPORT INFORMATION
  Report Type: Spontaneous
  Country: US (occurrence: US)
  Receive Date: 20121015
  Receipt Date: 20131024
  Transmission Date: 20141212
  Serious: No
  Sender: FDA-Public Use
  Company Number: US-PFIZER INC-2012252256

PATIENT
  Sex: Male

DRUGS (1)
  1. ADVIL PM [Suspect]
     Indication: BACK PAIN
     Dosage: UNK, ONCE A DAY
     Route: 048
     Dates: start: 201209, end: 201210

REACTIONS (2)
  - Asthenia [Unknown]
  - Dizziness [Unknown]
